FAERS Safety Report 19979594 (Version 2)
Quarter: 2021Q4

REPORT INFORMATION
  Report Type: Report from Study
  Country: JP (occurrence: JP)
  Receive Date: 20211020
  Receipt Date: 20211020
  Transmission Date: 20220303
  Serious: Yes (Hospitalization, Other)
  Sender: FDA-Public Use
  Company Number: JP-SAKK-2021SA343507AA

PATIENT
  Age: 71 Year
  Sex: Male

DRUGS (28)
  1. ISATUXIMAB [Suspect]
     Active Substance: ISATUXIMAB
     Indication: Plasma cell myeloma
     Dosage: 10 MG/KG, 1X
     Route: 041
     Dates: start: 20210819, end: 20210819
  2. ISATUXIMAB [Suspect]
     Active Substance: ISATUXIMAB
     Dosage: 10 MG/KG, Q4W
     Route: 041
     Dates: start: 20201008, end: 20201203
  3. ISATUXIMAB [Suspect]
     Active Substance: ISATUXIMAB
     Dosage: 10 MG/KG, Q4W
     Route: 041
     Dates: start: 20210107, end: 20210304
  4. ISATUXIMAB [Suspect]
     Active Substance: ISATUXIMAB
     Dosage: 10 MG/KG, Q4W
     Route: 041
     Dates: start: 20210325, end: 20210520
  5. ISATUXIMAB [Suspect]
     Active Substance: ISATUXIMAB
     Dosage: 10 MG/KG, 1X
     Route: 041
     Dates: start: 20210624, end: 20210624
  6. ISATUXIMAB [Suspect]
     Active Substance: ISATUXIMAB
     Dosage: 10 MG/KG, 1X
     Route: 041
     Dates: start: 20210721, end: 20210721
  7. DEXAMETHASONE [Concomitant]
     Active Substance: DEXAMETHASONE
     Indication: Plasma cell myeloma
     Dosage: 20 MG, Q4W
     Route: 065
     Dates: start: 20201008, end: 20201203
  8. DEXAMETHASONE [Concomitant]
     Active Substance: DEXAMETHASONE
     Dosage: 20 MG, Q4W
     Route: 065
     Dates: start: 20210107, end: 20210304
  9. DEXAMETHASONE [Concomitant]
     Active Substance: DEXAMETHASONE
     Dosage: 20 MG, Q4W
     Route: 065
     Dates: start: 20210325, end: 20210520
  10. DEXAMETHASONE [Concomitant]
     Active Substance: DEXAMETHASONE
     Dosage: 20 MG, 1X
     Route: 065
     Dates: start: 20210624, end: 20210624
  11. DEXAMETHASONE [Concomitant]
     Active Substance: DEXAMETHASONE
     Dosage: 20 MG, 1X
     Route: 065
     Dates: start: 20210721, end: 20210721
  12. DEXAMETHASONE [Concomitant]
     Active Substance: DEXAMETHASONE
     Dosage: 20 MG, 1X
     Route: 065
     Dates: start: 20210819, end: 20210819
  13. POMALIDOMIDE [Concomitant]
     Active Substance: POMALIDOMIDE
     Indication: Plasma cell myeloma
     Dosage: DAILY DOSE: 4 MG
     Route: 065
     Dates: start: 20201008, end: 20201028
  14. POMALIDOMIDE [Concomitant]
     Active Substance: POMALIDOMIDE
     Dosage: DAILY DOSE: 4 MG
     Route: 065
     Dates: start: 20201105, end: 20201125
  15. POMALIDOMIDE [Concomitant]
     Active Substance: POMALIDOMIDE
     Dosage: DAILY DOSE: 4 MG
     Route: 065
     Dates: start: 20201203, end: 20201223
  16. POMALIDOMIDE [Concomitant]
     Active Substance: POMALIDOMIDE
     Dosage: DAILY DOSE: 4 MG
     Route: 065
     Dates: start: 20210107, end: 20210127
  17. POMALIDOMIDE [Concomitant]
     Active Substance: POMALIDOMIDE
     Dosage: DAILY DOSE: 4 MG
     Route: 065
     Dates: start: 20210204, end: 20210224
  18. POMALIDOMIDE [Concomitant]
     Active Substance: POMALIDOMIDE
     Dosage: DAILY DOSE: 4 MG
     Route: 065
     Dates: start: 20210304, end: 20210317
  19. POMALIDOMIDE [Concomitant]
     Active Substance: POMALIDOMIDE
     Dosage: DAILY DOSE: 4 MG
     Route: 065
     Dates: start: 20210325, end: 20210414
  20. POMALIDOMIDE [Concomitant]
     Active Substance: POMALIDOMIDE
     Dosage: DAILY DOSE: 4 MG
     Route: 065
     Dates: start: 20210422, end: 20210512
  21. POMALIDOMIDE [Concomitant]
     Active Substance: POMALIDOMIDE
     Dosage: DAILY DOSE: 4 MG
     Route: 065
     Dates: start: 20210520, end: 20210609
  22. POMALIDOMIDE [Concomitant]
     Active Substance: POMALIDOMIDE
     Dosage: DAILY DOSE: 4 MG
     Route: 065
     Dates: start: 20210624, end: 20210714
  23. POMALIDOMIDE [Concomitant]
     Active Substance: POMALIDOMIDE
     Dosage: DAILY DOSE: 4 MG
     Route: 065
     Dates: start: 20210721, end: 20210809
  24. POMALIDOMIDE [Concomitant]
     Active Substance: POMALIDOMIDE
     Dosage: DAILY DOSE: 4 MG
     Route: 065
     Dates: start: 20210819, end: 20210902
  25. DIPHENHYDRAMINE [Concomitant]
     Active Substance: DIPHENHYDRAMINE
     Indication: Chemotherapy side effect prophylaxis
     Dosage: DAILY DOSE: 30 MG
     Route: 065
     Dates: start: 20201008
  26. CALONAL [Concomitant]
     Active Substance: ACETAMINOPHEN
     Indication: Chemotherapy side effect prophylaxis
     Dosage: DAILY DOSE: 900 MG
     Route: 065
     Dates: start: 20201008
  27. SULFAMETHOXAZOLE\TRIMETHOPRIM [Concomitant]
     Active Substance: SULFAMETHOXAZOLE\TRIMETHOPRIM
     Indication: Infection prophylaxis
     Dosage: DAILY DOSE: 1 TABLET
     Route: 048
     Dates: start: 20201008
  28. FLUCONAZOLE [Concomitant]
     Active Substance: FLUCONAZOLE
     Indication: Infection prophylaxis
     Dosage: DAILY DOSE: 200 MG
     Route: 065
     Dates: start: 20201008

REACTIONS (1)
  - Aplasia pure red cell [Recovering/Resolving]

NARRATIVE: CASE EVENT DATE: 20210902
